FAERS Safety Report 10726294 (Version 4)
Quarter: 2019Q4

REPORT INFORMATION
  Report Type: Spontaneous
  Country: DE (occurrence: DE)
  Receive Date: 20150121
  Receipt Date: 20191205
  Transmission Date: 20200122
  Serious: Yes (Hospitalization, Other)
  Sender: FDA-Public Use
  Company Number: GXKR2015DE000598

PATIENT
  Sex: Female
  Weight: 2.4 kg

DRUGS (5)
  1. VALPROAT [Suspect]
     Active Substance: VALPROATE SODIUM
     Indication: FOETAL EXPOSURE DURING PREGNANCY
     Dosage: MATERNAL DOSE: 500 MG, QD
     Route: 064
     Dates: start: 20140402, end: 20141126
  2. LEVETIRACETAM. [Suspect]
     Active Substance: LEVETIRACETAM
     Indication: FOETAL EXPOSURE DURING PREGNANCY
     Dosage: MATERNAL DOSE: 1500 MG, QD
     Route: 064
     Dates: start: 20140402, end: 20141126
  3. CLOBAZAM. [Suspect]
     Active Substance: CLOBAZAM
     Indication: FOETAL EXPOSURE DURING PREGNANCY
     Dosage: MATERNAL DOSE: 40 MG, QD
     Route: 064
     Dates: start: 20140402, end: 20141126
  4. BETAMETHASONE. [Concomitant]
     Active Substance: BETAMETHASONE
     Indication: FOETAL EXPOSURE DURING PREGNANCY
     Dosage: UNK
     Route: 064
     Dates: start: 2014, end: 2014
  5. PHENYTOIN. [Suspect]
     Active Substance: PHENYTOIN
     Indication: FOETAL EXPOSURE DURING PREGNANCY
     Dosage: MATERNAL DOSE: 400 MG, QD
     Route: 064
     Dates: start: 20140402, end: 20141126

REACTIONS (7)
  - Bradycardia neonatal [Recovered/Resolved]
  - Low birth weight baby [Unknown]
  - Respiratory disorder neonatal [Recovered/Resolved]
  - Selective eating disorder [Recovered/Resolved]
  - Premature baby [Unknown]
  - Weight gain poor [Unknown]
  - Maternal exposure during pregnancy [Unknown]

NARRATIVE: CASE EVENT DATE: 2014
